FAERS Safety Report 8853442 (Version 1)
Quarter: 2012Q4

REPORT INFORMATION
  Report Type: 
  Country: FR (occurrence: FR)
  Receive Date: 20121022
  Receipt Date: 20121022
  Transmission Date: 20130627
  Serious: Yes (Hospitalization)
  Sender: FDA-Public Use
  Company Number: FR-GLAXOSMITHKLINE-B0837391A

PATIENT
  Age: 51 Year
  Sex: Female

DRUGS (6)
  1. ZINNAT [Suspect]
     Indication: INFECTION
     Dosage: 250MG Single dose
     Route: 048
     Dates: start: 20090218, end: 20090218
  2. SURGAM [Concomitant]
  3. CLARYTINE [Concomitant]
  4. CHAMPIX [Concomitant]
  5. STABLON [Concomitant]
  6. XANAX [Concomitant]

REACTIONS (4)
  - Angioedema [Recovered/Resolved]
  - Painful respiration [Recovered/Resolved]
  - Urticaria [Recovered/Resolved]
  - Hypotension [Recovered/Resolved]
